FAERS Safety Report 17647824 (Version 4)
Quarter: 2022Q3

REPORT INFORMATION
  Report Type: Spontaneous
  Country: CA (occurrence: CA)
  Receive Date: 20200408
  Receipt Date: 20220701
  Transmission Date: 20221027
  Serious: Yes (Other)
  Sender: FDA-Public Use
  Company Number: CA-SAMSUNG BIOEPIS-SB-2020-11572

PATIENT
  Age: 21 Year
  Sex: Female
  Weight: 59 kg

DRUGS (6)
  1. INFLIXIMAB [Suspect]
     Active Substance: INFLIXIMAB
     Indication: Crohn^s disease
     Route: 042
  2. DESOXIMETASONE [Concomitant]
     Active Substance: DESOXIMETASONE
     Indication: Product used for unknown indication
     Route: 065
  3. ORTHO EVRA [Concomitant]
     Active Substance: ETHINYL ESTRADIOL\NORELGESTROMIN
     Indication: Contraception
     Dosage: UNKNOWN, PATCH EXTENDED RELEASE
     Route: 065
  4. PREDNISONE [Concomitant]
     Active Substance: PREDNISONE
     Indication: Crohn^s disease
     Dosage: UNKNOWN
     Route: 048
  5. Salofalk [Concomitant]
     Indication: Product used for unknown indication
     Route: 065
  6. SOLU-MEDROL [Concomitant]
     Active Substance: METHYLPREDNISOLONE SODIUM SUCCINATE
     Indication: Product used for unknown indication
     Route: 042

REACTIONS (23)
  - Abdominal pain [Not Recovered/Not Resolved]
  - Abscess limb [Not Recovered/Not Resolved]
  - Allergy to chemicals [Not Recovered/Not Resolved]
  - Chest discomfort [Recovered/Resolved]
  - Conjunctivitis [Not Recovered/Not Resolved]
  - Diarrhoea [Not Recovered/Not Resolved]
  - Ear swelling [Not Recovered/Not Resolved]
  - Eczema [Not Recovered/Not Resolved]
  - Erythema [Recovered/Resolved]
  - Feeling hot [Not Recovered/Not Resolved]
  - Malaise [Not Recovered/Not Resolved]
  - Nausea [Recovered/Resolved]
  - Pain [Not Recovered/Not Resolved]
  - Pharyngeal paraesthesia [Recovered/Resolved]
  - Pruritus [Not Recovered/Not Resolved]
  - Tachycardia [Not Recovered/Not Resolved]
  - Uveitis [Not Recovered/Not Resolved]
  - Paradoxical psoriasis [Not Recovered/Not Resolved]
  - Synovial cyst [Not Recovered/Not Resolved]
  - Weight decreased [Not Recovered/Not Resolved]
  - Incorrect dose administered [Not Recovered/Not Resolved]
  - Off label use [Not Recovered/Not Resolved]
  - Inappropriate schedule of product administration [Not Recovered/Not Resolved]
